FAERS Safety Report 9337487 (Version 2)
Quarter: 2013Q2

REPORT INFORMATION
  Report Type: Spontaneous
  Country: US (occurrence: US)
  Receive Date: 20130607
  Receipt Date: 20130617
  Transmission Date: 20140414
  Serious: Yes (Other)
  Sender: FDA-Public Use
  Company Number: US-PERRIGO-13US005828

PATIENT
  Age: 88 Year
  Sex: Female
  Weight: 67.57 kg

DRUGS (4)
  1. ACETAMINOPHEN 650MG ER 544 [Suspect]
     Indication: ARTHRALGIA
     Dosage: 1300 MG, SINGLE
     Route: 048
     Dates: start: 20130526, end: 20130526
  2. ANXIOLYTICS [Concomitant]
     Indication: ANXIETY
     Dosage: 1/2 DF, TID
     Route: 065
     Dates: start: 2011
  3. ANTIHYPERTENSIVES [Concomitant]
     Indication: HYPERTENSION
     Dosage: 1 DF, QD
     Route: 065
  4. CYMBALTA [Concomitant]
     Indication: FIBROMYALGIA
     Dosage: 1 DF, QD
     Route: 065

REACTIONS (3)
  - Gait disturbance [Recovered/Resolved]
  - Dizziness [Recovered/Resolved]
  - Abasia [Recovered/Resolved]
